FAERS Safety Report 20740898 (Version 1)
Quarter: 2022Q2

REPORT INFORMATION
  Report Type: Report from Study
  Country: JP (occurrence: JP)
  Receive Date: 20220422
  Receipt Date: 20220422
  Transmission Date: 20220721
  Serious: Yes (Hospitalization, Other)
  Sender: FDA-Public Use
  Company Number: JP-CELGENE-JPN-20180707196

PATIENT
  Age: 77 Year
  Sex: Female

DRUGS (73)
  1. REVLIMID [Suspect]
     Active Substance: LENALIDOMIDE
     Indication: Plasma cell myeloma
     Dosage: 10 MILLIGRAM
     Route: 048
     Dates: start: 20170530, end: 20170619
  2. REVLIMID [Suspect]
     Active Substance: LENALIDOMIDE
     Dosage: 10 MILLIGRAM
     Route: 048
     Dates: start: 20170627, end: 20170717
  3. REVLIMID [Suspect]
     Active Substance: LENALIDOMIDE
     Dosage: 10 MILLIGRAM
     Route: 048
     Dates: start: 20170725, end: 20170814
  4. REVLIMID [Suspect]
     Active Substance: LENALIDOMIDE
     Dosage: 10 MILLIGRAM
     Route: 048
     Dates: start: 20170822, end: 20170911
  5. REVLIMID [Suspect]
     Active Substance: LENALIDOMIDE
     Dosage: 10 MILLIGRAM
     Route: 048
     Dates: start: 20170919, end: 20171009
  6. REVLIMID [Suspect]
     Active Substance: LENALIDOMIDE
     Dosage: 10 MILLIGRAM
     Route: 048
     Dates: start: 20171017, end: 20171106
  7. REVLIMID [Suspect]
     Active Substance: LENALIDOMIDE
     Dosage: 10 MILLIGRAM
     Route: 048
     Dates: start: 20171114, end: 20171204
  8. REVLIMID [Suspect]
     Active Substance: LENALIDOMIDE
     Dosage: 10 MILLIGRAM
     Route: 048
     Dates: start: 20171212, end: 20180106
  9. REVLIMID [Suspect]
     Active Substance: LENALIDOMIDE
     Dosage: 10 MILLIGRAM
     Route: 048
     Dates: start: 20180116, end: 20180205
  10. REVLIMID [Suspect]
     Active Substance: LENALIDOMIDE
     Dosage: 10 MILLIGRAM
     Route: 048
     Dates: start: 20180213, end: 20180305
  11. REVLIMID [Suspect]
     Active Substance: LENALIDOMIDE
     Dosage: 10 MILLIGRAM
     Route: 048
     Dates: start: 20180313, end: 20180402
  12. REVLIMID [Suspect]
     Active Substance: LENALIDOMIDE
     Dosage: 10 MILLIGRAM
     Route: 048
     Dates: start: 20180409, end: 20180429
  13. REVLIMID [Suspect]
     Active Substance: LENALIDOMIDE
     Dosage: 10 MILLIGRAM
     Route: 048
     Dates: start: 20180514, end: 20180603
  14. REVLIMID [Suspect]
     Active Substance: LENALIDOMIDE
     Dosage: 10 MILLIGRAM
     Route: 048
     Dates: start: 20180612, end: 20180702
  15. REVLIMID [Suspect]
     Active Substance: LENALIDOMIDE
     Dosage: 10 MILLIGRAM
     Route: 048
     Dates: start: 20180710, end: 20180730
  16. REVLIMID [Suspect]
     Active Substance: LENALIDOMIDE
     Dosage: 5 MILLIGRAM
     Route: 048
     Dates: start: 20180807, end: 20180820
  17. REVLIMID [Suspect]
     Active Substance: LENALIDOMIDE
     Dosage: 5 MILLIGRAM
     Route: 048
     Dates: start: 20180903, end: 20180916
  18. REVLIMID [Suspect]
     Active Substance: LENALIDOMIDE
     Dosage: 5 MILLIGRAM
     Route: 048
     Dates: start: 20181001, end: 20181014
  19. REVLIMID [Suspect]
     Active Substance: LENALIDOMIDE
     Dosage: 5 MILLIGRAM
     Route: 048
     Dates: start: 20181029, end: 20181111
  20. REVLIMID [Suspect]
     Active Substance: LENALIDOMIDE
     Dosage: 5 MILLIGRAM
     Route: 048
     Dates: start: 20181126, end: 20181209
  21. REVLIMID [Suspect]
     Active Substance: LENALIDOMIDE
     Dosage: 5 MILLIGRAM
     Route: 048
     Dates: start: 20181217, end: 20181230
  22. REVLIMID [Suspect]
     Active Substance: LENALIDOMIDE
     Dosage: 5 MILLIGRAM
     Route: 048
     Dates: start: 20190122, end: 20190204
  23. REVLIMID [Suspect]
     Active Substance: LENALIDOMIDE
     Dosage: 5 MILLIGRAM
     Route: 048
     Dates: start: 20190218, end: 20190303
  24. REVLIMID [Suspect]
     Active Substance: LENALIDOMIDE
     Dosage: 5 MILLIGRAM
     Route: 048
     Dates: start: 20190318, end: 20190331
  25. REVLIMID [Suspect]
     Active Substance: LENALIDOMIDE
     Dosage: 5 MILLIGRAM
     Route: 048
     Dates: start: 20190415, end: 20190428
  26. REVLIMID [Suspect]
     Active Substance: LENALIDOMIDE
     Dosage: 5 MILLIGRAM
     Route: 048
     Dates: start: 20190514, end: 20190527
  27. REVLIMID [Suspect]
     Active Substance: LENALIDOMIDE
     Dosage: 5 MILLIGRAM
     Route: 048
     Dates: start: 20190612, end: 20190625
  28. REVLIMID [Suspect]
     Active Substance: LENALIDOMIDE
     Dosage: 5 MILLIGRAM
     Route: 048
     Dates: start: 20190814, end: 20190827
  29. REVLIMID [Suspect]
     Active Substance: LENALIDOMIDE
     Dosage: 5 MILLIGRAM
     Route: 048
     Dates: start: 20190911, end: 20190924
  30. REVLIMID [Suspect]
     Active Substance: LENALIDOMIDE
     Dosage: 5 MILLIGRAM
     Route: 048
     Dates: start: 20191008, end: 20191021
  31. REVLIMID [Suspect]
     Active Substance: LENALIDOMIDE
     Dosage: 5 MILLIGRAM
     Route: 048
     Dates: start: 20191105, end: 20191118
  32. REVLIMID [Suspect]
     Active Substance: LENALIDOMIDE
     Dosage: 5 MILLIGRAM
     Route: 048
     Dates: start: 20191203, end: 20191216
  33. REVLIMID [Suspect]
     Active Substance: LENALIDOMIDE
     Dosage: 5 MILLIGRAM
     Route: 048
     Dates: start: 20200106, end: 20200119
  34. REVLIMID [Suspect]
     Active Substance: LENALIDOMIDE
     Dosage: 5 MILLIGRAM
     Route: 048
     Dates: start: 20200203, end: 20200216
  35. REVLIMID [Suspect]
     Active Substance: LENALIDOMIDE
     Dosage: 5 MILLIGRAM
     Route: 048
     Dates: start: 20200302, end: 20200315
  36. REVLIMID [Suspect]
     Active Substance: LENALIDOMIDE
     Dosage: 5 MILLIGRAM
     Route: 048
     Dates: start: 20200330, end: 20200412
  37. LENADEX [Suspect]
     Active Substance: DEXAMETHASONE ACETATE
     Indication: Plasma cell myeloma
     Route: 048
     Dates: start: 20170530, end: 20180109
  38. LENADEX [Suspect]
     Active Substance: DEXAMETHASONE ACETATE
     Route: 048
     Dates: start: 20180116, end: 20180403
  39. LENADEX [Suspect]
     Active Substance: DEXAMETHASONE ACETATE
     Route: 048
     Dates: start: 20180410, end: 20180605
  40. LENADEX [Suspect]
     Active Substance: DEXAMETHASONE ACETATE
     Route: 048
     Dates: start: 20180612, end: 20180612
  41. LENADEX [Suspect]
     Active Substance: DEXAMETHASONE ACETATE
     Route: 048
     Dates: start: 20180619, end: 20180710
  42. ZOMETA [Suspect]
     Active Substance: ZOLEDRONIC ACID
     Indication: Plasma cell myeloma
     Dosage: FREQUENCY TEXT: UNKNOWN?UNKNOWN
     Route: 041
  43. ZOMETA [Suspect]
     Active Substance: ZOLEDRONIC ACID
     Dosage: FREQUENCY TEXT: UNKNOWN?UNKNOWN
     Route: 041
  44. AMLODIPINE [Concomitant]
     Active Substance: AMLODIPINE BESYLATE
     Indication: Product used for unknown indication
     Dosage: FREQUENCY TEXT: UNKNOWN?UNKNOWN
     Route: 048
  45. SARPOGRELATE [Concomitant]
     Active Substance: SARPOGRELATE
     Indication: Prophylaxis
     Dosage: FREQUENCY TEXT: UNKNOWN?UNKNOWN
     Route: 048
  46. CALONAL [Concomitant]
     Active Substance: ACETAMINOPHEN
     Indication: Product used for unknown indication
     Dosage: FREQUENCY TEXT: UNKNOWN?UNKNOWN
     Route: 048
  47. CALONAL [Concomitant]
     Active Substance: ACETAMINOPHEN
     Indication: Plasma cell myeloma
  48. CALONAL [Concomitant]
     Active Substance: ACETAMINOPHEN
     Indication: Osteoarthritis
  49. CALONAL [Concomitant]
     Active Substance: ACETAMINOPHEN
     Indication: Arthralgia
  50. VONOPRAZAN FUMARATE [Concomitant]
     Active Substance: VONOPRAZAN FUMARATE
     Indication: Prophylaxis
     Dosage: FREQUENCY TEXT: UNKNOWN?UNKNOWN
     Route: 048
  51. TENORMIN [Concomitant]
     Active Substance: ATENOLOL
     Indication: Product used for unknown indication
     Dosage: FREQUENCY TEXT: UNKNOWN?UNKNOWN
     Route: 048
  52. SULFAMETHOXAZOLE\TRIMETHOPRIM [Concomitant]
     Active Substance: SULFAMETHOXAZOLE\TRIMETHOPRIM
     Indication: Prophylaxis
     Dosage: FREQUENCY TEXT: UNKNOWN?UNKNOWN
     Route: 048
  53. FEBUXOSTAT [Concomitant]
     Active Substance: FEBUXOSTAT
     Indication: Prophylaxis
     Dosage: FREQUENCY TEXT: UNKNOWN?UNKNOWN
     Route: 048
  54. LIVALO [Concomitant]
     Active Substance: PITAVASTATIN CALCIUM
     Indication: Product used for unknown indication
     Dosage: FREQUENCY TEXT: UNKNOWN?UNKNOWN
     Route: 048
  55. LYRICA [Concomitant]
     Active Substance: PREGABALIN
     Indication: Plasma cell myeloma
     Dosage: FREQUENCY TEXT: UNKNOWN?UNKNOWN
     Route: 048
  56. ROZEREM [Concomitant]
     Active Substance: RAMELTEON
     Indication: Product used for unknown indication
     Dosage: FREQUENCY TEXT: UNKNOWN?UNKNOWN
     Route: 048
  57. CAMPHOR\MENTHOL\METHYL SALICYLATE [Concomitant]
     Active Substance: CAMPHOR\MENTHOL\METHYL SALICYLATE
     Indication: Product used for unknown indication
     Dosage: FREQUENCY TEXT: UNKNOWN?UNKNOWN
     Route: 065
  58. LOXOPROFEN SODIUM [Concomitant]
     Active Substance: LOXOPROFEN SODIUM
     Indication: Product used for unknown indication
     Dosage: FREQUENCY TEXT: UNKNOWN?UNKNOWN
     Route: 061
  59. ALFAROL [Concomitant]
     Active Substance: ALFACALCIDOL
     Indication: Prophylaxis
     Dosage: FREQUENCY TEXT: UNKNOWN?UNKNOWN
     Route: 048
  60. CALCIUM ASPARTATE [Concomitant]
     Active Substance: CALCIUM ASPARTATE
     Indication: Hypocalcaemia
     Dosage: FREQUENCY TEXT: UNKNOWN?UNKNOWN
     Route: 048
     Dates: start: 2017
  61. CALCIUM ASPARTATE [Concomitant]
     Active Substance: CALCIUM ASPARTATE
     Indication: Prophylaxis
  62. DECADRON [Concomitant]
     Active Substance: DEXAMETHASONE
     Indication: Plasma cell myeloma
     Route: 048
     Dates: start: 20180717, end: 20181001
  63. LANSOPRAZOLE [Concomitant]
     Active Substance: LANSOPRAZOLE
     Indication: Prophylaxis
     Dosage: FREQUENCY TEXT: UNKNOWN?UNKNOWN
     Route: 048
  64. DENOSUMAB [Concomitant]
     Active Substance: DENOSUMAB
     Indication: Plasma cell myeloma
     Dosage: FREQUENCY TEXT: UNKNOWN?UNKNOWN
     Route: 058
  65. FUROSEMIDE [Concomitant]
     Active Substance: FUROSEMIDE
     Indication: Product used for unknown indication
     Dosage: FREQUENCY TEXT: UNKNOWN?UNKNOWN
     Route: 048
  66. FUROSEMIDE [Concomitant]
     Active Substance: FUROSEMIDE
     Indication: Adverse event
  67. ACETAMINOPHEN\TRAMADOL HYDROCHLORIDE [Concomitant]
     Active Substance: ACETAMINOPHEN\TRAMADOL HYDROCHLORIDE
     Indication: Product used for unknown indication
     Dosage: FREQUENCY TEXT: UNKNOWN?UNKNOWN
     Route: 048
  68. ACETAMINOPHEN\TRAMADOL HYDROCHLORIDE [Concomitant]
     Active Substance: ACETAMINOPHEN\TRAMADOL HYDROCHLORIDE
     Indication: Adverse event
  69. CALCIUM LACTATE [Concomitant]
     Active Substance: CALCIUM LACTATE
     Indication: Prophylaxis
     Dosage: FREQUENCY TEXT: UNKNOWN?UNKNOWN
     Route: 048
  70. FELBINAC [Concomitant]
     Active Substance: FELBINAC
     Indication: Product used for unknown indication
     Dosage: FREQUENCY TEXT: UNKNOWN?UNKNOWN
     Route: 062
  71. CEFAZOLIN SODIUM [Concomitant]
     Active Substance: CEFAZOLIN SODIUM
     Indication: Prophylaxis
     Dosage: FREQUENCY TEXT: UNKNOWN?UNKNOWN
     Route: 042
  72. ENOXAPARIN SODIUM [Concomitant]
     Active Substance: ENOXAPARIN SODIUM
     Indication: Prophylaxis
     Dosage: FREQUENCY TEXT: UNKNOWN?UNKNOWN
     Route: 058
  73. LANSOPRAZOLE [Concomitant]
     Active Substance: LANSOPRAZOLE
     Indication: Prophylaxis
     Dosage: FREQUENCY TEXT: UNKNOWN?UNKNOWN
     Route: 048

REACTIONS (10)
  - Malignant neoplasm of unknown primary site [Not Recovered/Not Resolved]
  - Embolism venous [Recovering/Resolving]
  - Pulmonary embolism [Recovering/Resolving]
  - Arthralgia [Recovering/Resolving]
  - Anaemia [Recovered/Resolved]
  - White blood cell count decreased [Recovered/Resolved]
  - Platelet count decreased [Recovered/Resolved]
  - Hypocalcaemia [Recovered/Resolved]
  - Oedema peripheral [Recovered/Resolved]
  - Arthralgia [Recovering/Resolving]

NARRATIVE: CASE EVENT DATE: 20170602
